FAERS Safety Report 8157447-X (Version None)
Quarter: 2012Q1

REPORT INFORMATION
  Report Type: 
  Country: None (occurrence: None)
  Receive Date: 20120217
  Receipt Date: 20120203
  Transmission Date: 20120608
  Serious: Yes (Other)
  Sender: FDA-Public Use
  Company Number: DSA_55057_2012

PATIENT
  Sex: Female

DRUGS (1)
  1. ATIVAN [Suspect]
     Indication: PANIC ATTACK
     Dosage: DF ONCE EVERY TWO TO THREE MONTHS

REACTIONS (4)
  - IMMUNE SYSTEM DISORDER [None]
  - PNEUMONIA [None]
  - EPSTEIN-BARR VIRUS INFECTION [None]
  - NASOPHARYNGITIS [None]
